FAERS Safety Report 8969621 (Version 1)
Quarter: 2012Q4

REPORT INFORMATION
  Report Type: 
  Country: US (occurrence: US)
  Receive Date: 20121218
  Receipt Date: 20121218
  Transmission Date: 20130627
  Serious: Yes (Other)
  Sender: FDA-Public Use
  Company Number: US-BRISTOL-MYERS SQUIBB COMPANY-16275463

PATIENT
  Age: 8 Year
  Sex: Male
  Weight: 15 kg

DRUGS (1)
  1. ABILIFY TABS [Suspect]
     Indication: ATTENTION DEFICIT/HYPERACTIVITY DISORDER
     Dates: start: 2010, end: 20110901

REACTIONS (4)
  - Suicidal ideation [Recovered/Resolved]
  - Musculoskeletal stiffness [Recovered/Resolved]
  - Dysphemia [Recovered/Resolved]
  - Anger [Recovered/Resolved]
